FAERS Safety Report 11525320 (Version 1)
Quarter: 2015Q3

REPORT INFORMATION
  Report Type: Spontaneous
  Country: US (occurrence: US)
  Receive Date: 20150918
  Receipt Date: 20150918
  Transmission Date: 20151125
  Serious: Yes (Other)
  Sender: FDA-Public Use
  Company Number: US-TEVA-593372USA

PATIENT
  Sex: Female

DRUGS (1)
  1. ACICLOVIR [Suspect]
     Active Substance: ACYCLOVIR
     Indication: ORAL HERPES
     Dosage: 3200 MILLIGRAM DAILY;
     Route: 065

REACTIONS (2)
  - Tremor [Not Recovered/Not Resolved]
  - Wheelchair user [Unknown]
